FAERS Safety Report 7005191-4 (Version None)
Quarter: 2010Q3

REPORT INFORMATION
  Report Type: 
  Country: None (occurrence: None)
  Receive Date: 20100921
  Receipt Date: 20100914
  Transmission Date: 20110219
  Serious: Yes (Hospitalization, Other)
  Sender: FDA-Public Use
  Company Number: DE-BAYER-201039590GPV

PATIENT
  Age: 70 Year
  Sex: Female

DRUGS (6)
  1. MOXIFLOXACIN [Suspect]
     Indication: STAPHYLOCOCCAL INFECTION
     Route: 048
  2. CIPROFLOXACIN [Suspect]
     Indication: STAPHYLOCOCCAL INFECTION
     Route: 048
     Dates: start: 20071001
  3. CEFUROXIME [Concomitant]
     Indication: STAPHYLOCOCCAL INFECTION
     Route: 048
     Dates: start: 20081001
  4. GENTAMICIN [Concomitant]
  5. FLUCLOXACILLIN [Concomitant]
  6. CLINDAMYCIN [Concomitant]

REACTIONS (3)
  - BURSITIS [None]
  - INTERVERTEBRAL DISCITIS [None]
  - TENDONITIS [None]
